FAERS Safety Report 24142282 (Version 1)
Quarter: 2024Q3

REPORT INFORMATION
  Report Type: Spontaneous
  Country: US (occurrence: None)
  Receive Date: 20240726
  Receipt Date: 20240726
  Transmission Date: 20241016
  Serious: No
  Sender: Public
  Company Number: None

PATIENT
  Age: 83 Year
  Sex: Male
  Weight: 87.09 kg

DRUGS (1)
  1. ELIGARD [Suspect]
     Active Substance: LEUPROLIDE ACETATE
     Indication: Prostate cancer
     Dosage: 7.5 MG OTHER SUBCUTANEOUS?
     Route: 058

REACTIONS (3)
  - Injection site erythema [None]
  - Injection site scab [None]
  - Injection site induration [None]

NARRATIVE: CASE EVENT DATE: 20240720
